FAERS Safety Report 9676995 (Version 3)
Quarter: 2013Q4

REPORT INFORMATION
  Report Type: Report from Study
  Country: AU (occurrence: AU)
  Receive Date: 20131108
  Receipt Date: 20131218
  Transmission Date: 20140711
  Serious: Yes (Hospitalization, Disabling)
  Sender: FDA-Public Use
  Company Number: AU-ROCHE-1300866

PATIENT
  Age: 72 Year
  Sex: Male
  Weight: 81.2 kg

DRUGS (14)
  1. RANIBIZUMAB [Suspect]
     Indication: RETINAL VEIN OCCLUSION
     Route: 050
     Dates: start: 20121107, end: 20121107
  2. RANIBIZUMAB [Suspect]
     Route: 050
     Dates: start: 20130927, end: 20130927
  3. RANIBIZUMAB [Suspect]
     Route: 050
     Dates: start: 20130823, end: 20130823
  4. RANIBIZUMAB [Suspect]
     Route: 050
     Dates: start: 20131129, end: 20131129
  5. TIMOLOL [Concomitant]
     Route: 065
     Dates: start: 20130412, end: 20130927
  6. DIGOXIN [Concomitant]
     Route: 065
     Dates: start: 20100727
  7. RANTAC [Concomitant]
     Route: 065
     Dates: start: 20130402
  8. MAREVAN [Concomitant]
     Route: 065
     Dates: start: 201007
  9. MICARDIS [Concomitant]
     Route: 065
     Dates: start: 201307
  10. BISOPROLOL FUMARATE [Concomitant]
     Route: 065
     Dates: start: 201007
  11. ALPHAGAN [Concomitant]
     Route: 065
     Dates: start: 201007
  12. ALPHAGAN [Concomitant]
     Route: 065
     Dates: start: 20130927
  13. FRUSEMIDE [Concomitant]
  14. GTN [Concomitant]
     Route: 065
     Dates: start: 20131022

REACTIONS (2)
  - Macular ischaemia [Unknown]
  - Peripheral arterial occlusive disease [Recovering/Resolving]
